FAERS Safety Report 11917266 (Version 1)
Quarter: 2016Q1

REPORT INFORMATION
  Report Type: Spontaneous
  Country: IT (occurrence: IT)
  Receive Date: 20160114
  Receipt Date: 20160114
  Transmission Date: 20160526
  Serious: Yes (Other)
  Sender: FDA-Public Use
  Company Number: IT-TEVA-573633ISR

PATIENT
  Age: 25 Year
  Sex: Male

DRUGS (5)
  1. OKI [Suspect]
     Active Substance: KETOPROFEN LYSINE
     Indication: TOOTHACHE
     Route: 065
     Dates: start: 20141207, end: 20141207
  2. INDOMETHACIN. [Suspect]
     Active Substance: INDOMETHACIN
     Indication: TOOTHACHE
     Route: 065
     Dates: start: 20141207, end: 20141207
  3. ZIMOX [Suspect]
     Active Substance: AMOXICILLIN
     Indication: TOOTHACHE
     Route: 065
     Dates: start: 20141207, end: 20141207
  4. DICLOFENAC [Suspect]
     Active Substance: DICLOFENAC
     Indication: TOOTHACHE
     Dosage: 300 MILLIGRAM DAILY;
     Route: 065
     Dates: start: 20141207, end: 20141207
  5. TACHIPIRINA [Suspect]
     Active Substance: ACETAMINOPHEN
     Indication: TOOTHACHE
     Dosage: 1500 MILLIGRAM DAILY;
     Route: 065
     Dates: start: 20141207, end: 20141207

REACTIONS (4)
  - Overdose [Recovering/Resolving]
  - Abdominal pain upper [Recovering/Resolving]
  - Drug abuse [Recovering/Resolving]
  - Nausea [Recovering/Resolving]

NARRATIVE: CASE EVENT DATE: 20141207
